FAERS Safety Report 10584792 (Version 1)
Quarter: 2014Q4

REPORT INFORMATION
  Report Type: Report from Study
  Country: US (occurrence: US)
  Receive Date: 20141114
  Receipt Date: 20141114
  Transmission Date: 20150529
  Serious: Yes (Other)
  Sender: FDA-Public Use
  Company Number: US-JNJFOC-20141106802

PATIENT
  Age: 66 Year
  Sex: Female

DRUGS (1)
  1. SIMPONI [Suspect]
     Active Substance: GOLIMUMAB
     Indication: RHEUMATOID ARTHRITIS
     Route: 058

REACTIONS (5)
  - Injection site pain [Unknown]
  - Malaise [Unknown]
  - Rheumatoid arthritis [Unknown]
  - Contusion [Unknown]
  - Hand-foot-and-mouth disease [Not Recovered/Not Resolved]

NARRATIVE: CASE EVENT DATE: 201409
